FAERS Safety Report 5410212-6 (Version None)
Quarter: 2007Q3

REPORT INFORMATION
  Report Type: 
  Country: None (occurrence: None)
  Receive Date: 20070809
  Receipt Date: 20070807
  Transmission Date: 20080115
  Serious: Yes (Death, Hospitalization)
  Sender: FDA-Public Use
  Company Number: PL-MERCK-0708POL00002

PATIENT
  Age: 79 Year
  Sex: Female

DRUGS (7)
  1. ZOCOR [Suspect]
     Indication: HYPERCHOLESTEROLAEMIA
     Route: 048
     Dates: start: 20070501, end: 20070601
  2. ZOCOR [Suspect]
     Route: 048
     Dates: start: 20070601, end: 20070707
  3. PIRACETAM [Concomitant]
     Indication: CEREBROVASCULAR ACCIDENT
     Route: 065
  4. BETAHISTINE HYDROCHLORIDE [Concomitant]
     Indication: CEREBROVASCULAR ACCIDENT
     Route: 065
  5. GINKGO [Concomitant]
     Indication: CEREBROVASCULAR ACCIDENT
     Route: 065
  6. INDAPAMIDE [Concomitant]
     Indication: HYPERTENSION
     Route: 065
  7. RAMIPRIL [Concomitant]
     Indication: HYPERTENSION
     Route: 065

REACTIONS (2)
  - PNEUMONIA [None]
  - RHABDOMYOLYSIS [None]
